FAERS Safety Report 5773904-5 (Version None)
Quarter: 2008Q2

REPORT INFORMATION
  Report Type: 
  Country: None (occurrence: None)
  Receive Date: 20080616
  Receipt Date: 20080613
  Transmission Date: 20081010
  Serious: Yes (Hospitalization)
  Sender: FDA-Public Use
  Company Number: B0521191A

PATIENT
  Age: 42 Year
  Sex: Male

DRUGS (9)
  1. PAXIL [Suspect]
     Indication: DEPRESSION
     Dosage: 20MG PER DAY
     Route: 048
     Dates: start: 20080201, end: 20080428
  2. CARBAMAZEPINE [Suspect]
     Indication: TRIGEMINAL NEURALGIA
     Dosage: 100MG THREE TIMES PER DAY
     Route: 048
     Dates: start: 20080201, end: 20080215
  3. TRYPTANOL [Concomitant]
     Indication: PAIN
     Dosage: 30MG UNKNOWN
     Route: 048
     Dates: start: 20080201, end: 20080229
  4. SULPIRIDE [Concomitant]
     Indication: DEPRESSION
     Dosage: 100MG PER DAY
     Route: 048
     Dates: start: 20080201
  5. ETISEDAN [Concomitant]
     Indication: DEPRESSION
     Dosage: 1MG PER DAY
     Route: 048
     Dates: start: 20080222
  6. SEPAZON [Concomitant]
     Indication: DEPRESSION
     Dosage: 2MG PER DAY
     Route: 048
     Dates: start: 20080201, end: 20080428
  7. UNKNOWN DRUG [Concomitant]
     Indication: TENSION HEADACHE
     Dosage: 150MG PER DAY
     Route: 048
     Dates: start: 20080411, end: 20080428
  8. MEILAX [Concomitant]
     Indication: DEPRESSION
     Dosage: 1MG PER DAY
     Route: 048
     Dates: start: 20080222
  9. NEUOMIL [Concomitant]
     Indication: DEPRESSION
     Dosage: 25MG PER DAY
     Route: 048
     Dates: start: 20080314, end: 20080410

REACTIONS (9)
  - ALANINE AMINOTRANSFERASE INCREASED [None]
  - ASPARTATE AMINOTRANSFERASE INCREASED [None]
  - EOSINOPHIL COUNT DECREASED [None]
  - GAMMA-GLUTAMYLTRANSFERASE INCREASED [None]
  - LIVER DISORDER [None]
  - LIVER FUNCTION TEST ABNORMAL [None]
  - NAUSEA [None]
  - NEUTROPHIL COUNT INCREASED [None]
  - OCULAR ICTERUS [None]
